FAERS Safety Report 5814678-9 (Version None)
Quarter: 2008Q3

REPORT INFORMATION
  Report Type: 
  Country: None (occurrence: None)
  Receive Date: 20080718
  Receipt Date: 20080129
  Transmission Date: 20090109
  Serious: No
  Sender: FDA-Public Use
  Company Number: US-KINGPHARMUSA00001-K200800151

PATIENT

DRUGS (3)
  1. LEVOXYL [Suspect]
     Dosage: 100 MCG, UNK
  2. LEVOXYL [Suspect]
     Dosage: 112 MCG, UNK
  3. YAZ [Concomitant]
     Indication: ORAL CONTRACEPTION

REACTIONS (6)
  - BLOOD TEST ABNORMAL [None]
  - BLOOD THYROID STIMULATING HORMONE ABNORMAL [None]
  - DRUG INTERACTION [None]
  - HYPERTHYROIDISM [None]
  - RASH [None]
  - WEIGHT DECREASED [None]
